FAERS Safety Report 4339799-1 (Version None)
Quarter: 2004Q2

REPORT INFORMATION
  Report Type: 
  Country: None (occurrence: None)
  Receive Date: 20040416
  Receipt Date: 20030530
  Transmission Date: 20050107
  Serious: Yes (Hospitalization)
  Sender: FDA-Public Use
  Company Number: US-BRISTOL-MYERS SQUIBB COMPANY-12289203

PATIENT
  Age: 78 Year
  Sex: Male
  Weight: 61 kg

DRUGS (3)
  1. CAPTOPRIL [Suspect]
     Indication: HYPERTENSION
  2. HYDROCHLOROTHIAZIDE [Concomitant]
     Dosage: GLUTEN FREE. TAKEN FOR YEARS.
  3. ALPRAZOLAM [Concomitant]
     Dosage: GLUTEN FREE. TAKEN FOR YEARS.

REACTIONS (1)
  - THERAPEUTIC RESPONSE DECREASED [None]
